FAERS Safety Report 5136530-7 (Version None)
Quarter: 2006Q4

REPORT INFORMATION
  Report Type: 
  Country: None (occurrence: None)
  Receive Date: 20061027
  Receipt Date: 20061025
  Transmission Date: 20070319
  Serious: Yes (Life-Threatening)
  Sender: FDA-Public Use
  Company Number: GB-BOEHRINGER INGELHEIM PHARMACEUTICALS, INC.-2006-UK-04395UK

PATIENT
  Age: 43 Year
  Sex: Male
  Weight: 92 kg

DRUGS (6)
  1. MICARDIS [Suspect]
     Indication: HYPERTENSION
     Route: 048
     Dates: start: 20060807, end: 20060904
  2. DOXAZOSIN MESYLATE [Concomitant]
     Indication: HYPERTENSION
     Route: 048
     Dates: start: 20021206
  3. ISTIN [Concomitant]
     Indication: HYPERTENSION
     Route: 048
     Dates: start: 20010101
  4. NATRILIX SR [Concomitant]
     Indication: HYPERTENSION
     Route: 048
     Dates: start: 20010101
  5. PANTOPRAZOLE SODIUM [Concomitant]
     Indication: DYSPEPSIA
     Route: 048
  6. ZOPICLONE [Concomitant]
     Indication: INSOMNIA
     Route: 048

REACTIONS (1)
  - ANGIONEUROTIC OEDEMA [None]
